FAERS Safety Report 7381100-3 (Version None)
Quarter: 2011Q1

REPORT INFORMATION
  Report Type: 
  Country: None (occurrence: None)
  Receive Date: 20110329
  Receipt Date: 20100706
  Transmission Date: 20110831
  Serious: No
  Sender: FDA-Public Use
  Company Number: US-AMGEN-KDL422577

PATIENT
  Sex: Female

DRUGS (4)
  1. PHOSLO [Concomitant]
     Dosage: UNK UNK, UNK
  2. PARICALCITOL [Concomitant]
     Dosage: UNK UNK, UNK
  3. SENSIPAR [Suspect]
     Indication: HYPERPARATHYROIDISM SECONDARY
     Dosage: 30 MG, QD
  4. EPOGEN [Suspect]
     Indication: DIALYSIS
     Dosage: UNK UNK, UNK

REACTIONS (5)
  - STRESS [None]
  - INSOMNIA [None]
  - GLUCOSE TOLERANCE IMPAIRED [None]
  - UNEVALUABLE EVENT [None]
  - ASTHENIA [None]
